FAERS Safety Report 5314294-1 (Version None)
Quarter: 2007Q2

REPORT INFORMATION
  Report Type: 
  Country: None (occurrence: None)
  Receive Date: 20070425
  Receipt Date: 20070413
  Transmission Date: 20071010
  Serious: Yes (Death)
  Sender: FDA-Public Use
  Company Number: US019037

PATIENT
  Sex: Female

DRUGS (4)
  1. ACTIQ [Suspect]
     Indication: BACK PAIN
  2. DILAUDID [Suspect]
     Indication: DRUG USE FOR UNKNOWN INDICATION
  3. DURAGESIC [Suspect]
     Indication: DRUG USE FOR UNKNOWN INDICATION
  4. VALIUM [Suspect]
     Indication: DRUG USE FOR UNKNOWN INDICATION

REACTIONS (1)
  - MULTIPLE DRUG OVERDOSE ACCIDENTAL [None]
